FAERS Safety Report 9582899 (Version 1)
Quarter: 2013Q4

REPORT INFORMATION
  Report Type: Spontaneous
  Country: US (occurrence: US)
  Receive Date: 20131002
  Receipt Date: 20131002
  Transmission Date: 20140711
  Serious: No
  Sender: FDA-Public Use
  Company Number: US-AMGEN-USASP2013043253

PATIENT
  Age: 71 Year
  Sex: Female
  Weight: 68.03 kg

DRUGS (7)
  1. ENBREL [Suspect]
     Indication: PRODUCT USED FOR UNKNOWN INDICATION
     Dosage: 50 MG, QWK
     Route: 058
  2. TURMERIC                           /01079602/ [Concomitant]
     Dosage: 450 MG, UNK
  3. FOLIC ACID [Concomitant]
     Dosage: 20 MG, UNK
  4. MULTIVITAMINS, PLAIN [Concomitant]
     Dosage: UNK
  5. CALCIUM +D                         /07511201/ [Concomitant]
     Dosage: UNK
  6. MAGNESIUM [Concomitant]
     Dosage: 400 MG, UNK
  7. VITAMIN B12 [Concomitant]
     Dosage: 1000 MCG, UNK

REACTIONS (2)
  - Nasopharyngitis [Unknown]
  - Eye infection [Unknown]
